FAERS Safety Report 7921937-2 (Version None)
Quarter: 2011Q4

REPORT INFORMATION
  Report Type: 
  Country: None (occurrence: None)
  Receive Date: 20111117
  Receipt Date: 20111108
  Transmission Date: 20120403
  Serious: Yes (Other)
  Sender: FDA-Public Use
  Company Number: US-ASTRAZENECA-2010SE24046

PATIENT
  Age: 66 Year
  Sex: Male

DRUGS (6)
  1. NEXIUM [Suspect]
     Route: 048
  2. SYMBICORT [Suspect]
     Dosage: THREE TIMES A DAY
     Route: 055
  3. PREDNISONE TAB [Concomitant]
     Dosage: DAILY
  4. SYMBICORT [Suspect]
     Indication: EMPHYSEMA
     Dosage: 640 TWO TIMES A DAY
     Route: 055
  5. VALIUM [Concomitant]
     Dosage: AS REQUIRED
     Route: 048
  6. CADUET [Concomitant]

REACTIONS (10)
  - ERYTHEMA [None]
  - BRONCHITIS [None]
  - GASTRITIS [None]
  - EMPHYSEMA [None]
  - SCLERODERMA [None]
  - BACK PAIN [None]
  - CARDIAC DISORDER [None]
  - GASTROOESOPHAGEAL REFLUX DISEASE [None]
  - PANCREATITIS CHRONIC [None]
  - INAPPROPRIATE SCHEDULE OF DRUG ADMINISTRATION [None]
